FAERS Safety Report 5318670-2 (Version None)
Quarter: 2007Q1

REPORT INFORMATION
  Report Type: 
  Country: None (occurrence: None)
  Receive Date: 20070130
  Receipt Date: 20061024
  Transmission Date: 20070707
  Serious: No
  Sender: FDA-Public Use
  Company Number: 200617901US

PATIENT
  Age: 78 Year
  Sex: Female

DRUGS (4)
  1. KETEK [Suspect]
     Indication: UPPER RESPIRATORY TRACT INFECTION
     Dosage: 800 MG QD PO
     Route: 048
     Dates: start: 20060523, end: 20060528
  2. FLUTICASONE PROPIONATE (FLONASE) [Concomitant]
  3. SALBUTAMOL [Concomitant]
  4. MONTELUKAST SODIUM [Concomitant]

REACTIONS (2)
  - DIARRHOEA [None]
  - WEIGHT DECREASED [None]
